FAERS Safety Report 8849688 (Version 3)
Quarter: 2012Q4

REPORT INFORMATION
  Report Type: 
  Country: US (occurrence: US)
  Receive Date: 20121019
  Receipt Date: 20121123
  Transmission Date: 20130627
  Serious: Yes (Other)
  Sender: FDA-Public Use
  Company Number: PHEH2012US020245

PATIENT
  Sex: Female

DRUGS (10)
  1. TEKTURNA [Suspect]
     Dosage: UNK
  2. DIOVAN [Suspect]
     Dosage: 80 mg, UNK
     Route: 048
  3. DIOVAN [Suspect]
     Dosage: 160 mg, UNK
     Route: 048
  4. DIOVAN [Suspect]
     Dosage: 320 mg, UNK
     Route: 048
  5. DIOVAN HCT [Suspect]
     Dosage: 1 DF (valsartan 320mg and hydrochlorotiazide 25mg) per day
     Route: 048
  6. LEVOTHYROXINE [Concomitant]
     Dosage: 88 ug per day
  7. VITAMIN D [Concomitant]
     Dosage: 50000 U per week
  8. PRAVASTATIN [Concomitant]
     Dosage: 40 mg daily
  9. ACETYLSALICYLIC ACID [Concomitant]
     Dosage: 80 mg, UNK
  10. COQ10 [Concomitant]
     Dosage: 250 mg per day
     Route: 048

REACTIONS (3)
  - Diastolic dysfunction [Unknown]
  - Arterial occlusive disease [Unknown]
  - Blood pressure inadequately controlled [Unknown]
